FAERS Safety Report 9251034 (Version 1)
Quarter: 2013Q1

REPORT INFORMATION
  Report Type: Spontaneous
  Country: US (occurrence: None)
  Receive Date: 20130305
  Receipt Date: 20130305
  Transmission Date: 20140127
  Serious: Yes (Hospitalization)
  Sender: FDA-Public Use
  Company Number: 163-21880-12081564

PATIENT
  Age: 71 Year
  Sex: Female
  Weight: 81.65 kg

DRUGS (15)
  1. REVLIMID [Suspect]
     Indication: PLASMA CELL MYELOMA
     Route: 048
     Dates: start: 20110720
  2. REVLIMID [Suspect]
     Indication: B-CELL LYMPHOMA
     Route: 048
     Dates: start: 20110720
  3. LEVOTHYROXINE (LEVOTHYROXINE) [Concomitant]
  4. CLONAZEPAM (CLONAZEPAM) [Concomitant]
  5. METFORMIN (METFORMIN) [Concomitant]
  6. AMLODIPINE (AMLODIPINE) [Concomitant]
  7. OXYCODONE (OXYCODONE) [Concomitant]
  8. CELEBREX (CELECOXIB) [Concomitant]
  9. MULTIVITAMIN (MULTIVITAMINS) [Concomitant]
  10. IRON (IRON) [Concomitant]
  11. BENAZEPRIL (BENAZEPRIL) [Concomitant]
  12. HCTZ (HYDROCHLOROTHIAZIDE) [Concomitant]
  13. CALCIUM (CALCIUM) [Concomitant]
  14. KLOR-CON (POTASSIUM CHLORIDE) [Concomitant]
  15. VITAMIN D (ERGOCALCIFEROL) [Concomitant]

REACTIONS (1)
  - Deep vein thrombosis [None]
